FAERS Safety Report 8984952 (Version 1)
Quarter: 2012Q4

REPORT INFORMATION
  Report Type: 
  Country: US (occurrence: US)
  Receive Date: 20121226
  Receipt Date: 20121226
  Transmission Date: 20130627
  Serious: No
  Sender: FDA-Public Use
  Company Number: US-PFIZER INC-2012323650

PATIENT
  Age: 69 Year
  Sex: Male
  Weight: 113.38 kg

DRUGS (11)
  1. PRISTIQ [Suspect]
     Indication: DEPRESSION
     Dosage: 50 mg, 1x/day
     Route: 048
     Dates: start: 20121218
  2. PRISTIQ [Suspect]
     Indication: MOOD SWINGS
  3. PRISTIQ [Suspect]
     Indication: FEELING ABNORMAL
  4. GLIMEPIRIDE [Concomitant]
     Indication: TYPE 2 DIABETES MELLITUS
     Dosage: 2 mg, 1x/day
  5. METFORMIN [Concomitant]
     Indication: TYPE 2 DIABETES MELLITUS
     Dosage: 500 mg, 2x/day
  6. TORSEMIDE [Concomitant]
     Dosage: 20 mg, 1x/day
  7. LOSARTAN [Concomitant]
     Dosage: 100 mg, 1x/daily
  8. SIMVASTATIN [Concomitant]
     Dosage: 80 mg, 1x/day
  9. DOCUSATE SODIUM [Concomitant]
     Dosage: 100 mg, 2x/day
  10. METOPROLOL [Concomitant]
     Dosage: 100 mg, 2x/day
  11. DILTIAZEM [Concomitant]
     Dosage: UNK, 1x/day

REACTIONS (3)
  - Headache [Recovering/Resolving]
  - Poor quality sleep [Unknown]
  - Eye disorder [Unknown]
